FAERS Safety Report 9019172 (Version 1)
Quarter: 2013Q1

REPORT INFORMATION
  Report Type: Report from Study
  Country: DE (occurrence: DE)
  Receive Date: 20130118
  Receipt Date: 20130118
  Transmission Date: 20140127
  Serious: Yes (Hospitalization)
  Sender: FDA-Public Use
  Company Number: DE-BAXTER-2013BAX001326

PATIENT
  Age: 53 Year
  Sex: Male

DRUGS (7)
  1. CELLTOP [Suspect]
     Indication: NON-HODGKIN^S LYMPHOMA
     Route: 065
  2. ENDOXAN 1G [Suspect]
     Indication: NON-HODGKIN^S LYMPHOMA
     Route: 065
  3. HOLOXAN [Suspect]
     Indication: NON-HODGKIN^S LYMPHOMA
     Route: 065
  4. RITUXIMAB [Suspect]
     Indication: NON-HODGKIN^S LYMPHOMA
     Route: 042
  5. DOXORUBICIN [Suspect]
     Indication: NON-HODGKIN^S LYMPHOMA
     Route: 065
  6. VINCRISTINE [Suspect]
     Indication: NON-HODGKIN^S LYMPHOMA
     Route: 065
  7. PREDNISOLONE [Suspect]
     Indication: NON-HODGKIN^S LYMPHOMA
     Route: 065

REACTIONS (1)
  - Sinusitis [Not Recovered/Not Resolved]
